FAERS Safety Report 23117034 (Version 1)
Quarter: 2023Q4

REPORT INFORMATION
  Report Type: Spontaneous
  Country: US (occurrence: US)
  Receive Date: 20231027
  Receipt Date: 20231027
  Transmission Date: 20240110
  Serious: Yes (Hospitalization, Other)
  Sender: FDA-Public Use
  Company Number: US-FreseniusKabi-FK202317134

PATIENT
  Age: 71 Year
  Sex: Male

DRUGS (6)
  1. HALOPERIDOL [Suspect]
     Active Substance: HALOPERIDOL
     Indication: Psychotic disorder
     Dosage: 2 DOSES OF HALOPERIDOL (1 MG)
  2. LEVODOPA [Concomitant]
     Active Substance: LEVODOPA
     Indication: Parkinsonian crisis
  3. SUCCINYLCHOLINE [Concomitant]
     Active Substance: SUCCINYLCHOLINE
     Indication: General anaesthesia
  4. RIVASTIGMINE [Concomitant]
     Active Substance: RIVASTIGMINE
     Indication: Parkinsonian crisis
     Dosage: IMPROVEMENTS WERE MOST NOTICEABLE AFTER TITRATION OF THE DOSE TO 9.4 MG AND THEN AGAIN TO 13.3MG.
  5. MEMANTINE [Concomitant]
     Active Substance: MEMANTINE
     Indication: Dementia with Lewy bodies
  6. PIMAVANSERIN [Concomitant]
     Active Substance: PIMAVANSERIN
     Indication: Hallucination

REACTIONS (4)
  - Neuroleptic malignant syndrome [Recovering/Resolving]
  - Cognitive disorder [Not Recovered/Not Resolved]
  - Anxiety [Unknown]
  - Aggression [Unknown]
